FAERS Safety Report 9928015 (Version 1)
Quarter: 2014Q1

REPORT INFORMATION
  Report Type: Spontaneous
  Country: GB (occurrence: GB)
  Receive Date: 20140227
  Receipt Date: 20140227
  Transmission Date: 20141002
  Serious: Yes (Hospitalization)
  Sender: FDA-Public Use
  Company Number: GB-ORION CORPORATION ORION PHARMA-ENTC2014-0070

PATIENT
  Sex: Female

DRUGS (3)
  1. STALEVO [Suspect]
     Indication: PARKINSON^S DISEASE
     Dosage: STRENGTH: 200 MG
     Route: 048
  2. STALEVO [Suspect]
     Dosage: 150 MG MORE FREQUENTLY IN DAY, 200 MG AT NIGHT
     Route: 048
  3. SELEGILINE [Concomitant]
     Indication: MOVEMENT DISORDER
     Route: 065

REACTIONS (5)
  - Product quality issue [Unknown]
  - Product physical issue [Unknown]
  - Cerebrovascular accident [Recovered/Resolved]
  - Drug effect decreased [Unknown]
  - Dysphagia [Unknown]
